FAERS Safety Report 17612513 (Version 2)
Quarter: 2020Q2

REPORT INFORMATION
  Report Type: Report from Study
  Country: US (occurrence: US)
  Receive Date: 20200401
  Receipt Date: 20200521
  Transmission Date: 20200713
  Serious: No
  Sender: FDA-Public Use
  Company Number: NVSC2020US084533

PATIENT
  Sex: Male

DRUGS (1)
  1. COSENTYX [Suspect]
     Active Substance: SECUKINUMAB
     Indication: PSORIASIS
     Dosage: 300 MG (Q WEEKLY X 5 WEEKS THEN 300MG Q 4 WEEKS)
     Route: 058
     Dates: start: 20200115

REACTIONS (7)
  - Musculoskeletal pain [Unknown]
  - Lymph node pain [Recovered/Resolved]
  - Muscle fatigue [Unknown]
  - Infection [Unknown]
  - Pruritus [Recovered/Resolved]
  - Aerophagia [Unknown]
  - Abdominal distension [Recovered/Resolved]
